FAERS Safety Report 6183533-X (Version None)
Quarter: 2009Q2

REPORT INFORMATION
  Report Type: 
  Country: None (occurrence: None)
  Receive Date: 20090508
  Receipt Date: 20090424
  Transmission Date: 20091009
  Serious: Yes (Hospitalization)
  Sender: FDA-Public Use
  Company Number: US-RANBAXY-2009RR-22892

PATIENT
  Sex: Male

DRUGS (18)
  1. FENOFIBRATE TABLETS [Suspect]
     Indication: DRUG USE FOR UNKNOWN INDICATION
     Dosage: 145 MG, QD
     Route: 065
  2. METOPROLOL [Suspect]
     Indication: DRUG USE FOR UNKNOWN INDICATION
     Route: 065
  3. ASPIRIN [Suspect]
     Indication: ANTIPLATELET THERAPY
     Dosage: 325 MG, QD
  4. ASPIRIN [Suspect]
     Dosage: 81 MG, QD
  5. SORIATANE [Suspect]
     Indication: PSORIASIS
     Dosage: 25 MG, QD
     Route: 048
     Dates: start: 20080301, end: 20081120
  6. ADVAIR HFA [Suspect]
     Indication: DRUG USE FOR UNKNOWN INDICATION
     Route: 055
  7. SINGULAIR [Suspect]
     Indication: DRUG USE FOR UNKNOWN INDICATION
     Route: 065
  8. LIPITOR [Suspect]
     Indication: DRUG USE FOR UNKNOWN INDICATION
     Route: 065
  9. PLAVIX [Suspect]
     Indication: ANTIPLATELET THERAPY
     Route: 065
  10. ALBUTEROL [Concomitant]
     Indication: ASTHMA
     Route: 055
  11. ZETIA [Concomitant]
     Indication: DYSLIPIDAEMIA
     Route: 065
  12. ADVAIR HFA [Concomitant]
     Dosage: UNK
     Route: 055
  13. SINGULAIR [Concomitant]
     Dosage: 10 MG, QD
  14. ACITRETIN [Concomitant]
     Dosage: 25 MG, QD
  15. ASPIRIN [Concomitant]
     Dosage: 325 MBQ, UNK
  16. LIPITOR [Concomitant]
     Dosage: 10 MG, QD
  17. PLAVIX [Concomitant]
     Dosage: 79 MG, QD
  18. METOPROLOL [Concomitant]
     Dosage: 12.5 MG, QD

REACTIONS (6)
  - CORONARY ARTERY STENOSIS [None]
  - EPISTAXIS [None]
  - HYPOTENSION [None]
  - MYOCARDIAL INFARCTION [None]
  - VENTRICULAR HYPOKINESIA [None]
  - WEIGHT DECREASED [None]
